FAERS Safety Report 7765750-8 (Version None)
Quarter: 2011Q3

REPORT INFORMATION
  Report Type: 
  Country: None (occurrence: None)
  Receive Date: 20110921
  Receipt Date: 20110913
  Transmission Date: 20111222
  Serious: Yes (Hospitalization)
  Sender: FDA-Public Use
  Company Number: GB-CUBIST-2011S1000613

PATIENT

DRUGS (1)
  1. CUBICIN [Suspect]
     Indication: ENDOCARDITIS
     Dosage: DOSE UNIT:U UNKNOWN
     Route: 065

REACTIONS (1)
  - BACTERIAL INFECTION [None]
